FAERS Safety Report 4765619-7 (Version None)
Quarter: 2005Q3

REPORT INFORMATION
  Report Type: 
  Country: None (occurrence: None)
  Receive Date: 20050912
  Receipt Date: 20050904
  Transmission Date: 20060218
  Serious: Yes (Other)
  Sender: FDA-Public Use
  Company Number: PHEH2005US09870

PATIENT
  Sex: Female

DRUGS (2)
  1. FEMARA [Suspect]
     Dates: start: 20050902
  2. TAMOXIFEN CITRATE [Concomitant]
     Dates: end: 20050831

REACTIONS (2)
  - MIGRAINE WITH AURA [None]
  - PHOTOPSIA [None]
